FAERS Safety Report 5444385-6 (Version None)
Quarter: 2007Q3

REPORT INFORMATION
  Report Type: 
  Country: None (occurrence: None)
  Receive Date: 20070831
  Receipt Date: 20060907
  Transmission Date: 20080115
  Serious: Yes (Hospitalization)
  Sender: FDA-Public Use
  Company Number: 8018879

PATIENT
  Age: 21 Year
  Sex: Female
  Weight: 55 kg

DRUGS (2)
  1. XUSAL [Suspect]
     Dosage: 75 MG ONCE
  2. THEOPHYLLINE [Suspect]
     Dosage: 6000 MG ONCE

REACTIONS (3)
  - INCORRECT DOSE ADMINISTERED [None]
  - SUICIDE ATTEMPT [None]
  - TACHYCARDIA [None]
